FAERS Safety Report 11390130 (Version 1)
Quarter: 2015Q3

REPORT INFORMATION
  Report Type: Spontaneous
  Country: US (occurrence: None)
  Receive Date: 20150814
  Receipt Date: 20150814
  Transmission Date: 20151125
  Serious: Yes (Hospitalization)
  Sender: FDA-Public Use
  Company Number: None

PATIENT
  Age: 75 Year
  Sex: Female
  Weight: 93.1 kg

DRUGS (16)
  1. XANAX [Concomitant]
     Active Substance: ALPRAZOLAM
  2. LIPITOR [Concomitant]
     Active Substance: ATORVASTATIN CALCIUM
  3. CARDIZEM CD [Concomitant]
     Active Substance: DILTIAZEM HYDROCHLORIDE
  4. KDUR [Concomitant]
  5. FE [Concomitant]
     Active Substance: IRON
  6. HUMULIN NOS [Concomitant]
     Active Substance: INSULIN HUMAN
  7. CLARITIN [Concomitant]
     Active Substance: LORATADINE
  8. VIT B-12 [Concomitant]
  9. LANTUS [Concomitant]
     Active Substance: INSULIN GLARGINE
  10. BENICAR [Concomitant]
     Active Substance: OLMESARTAN MEDOXOMIL
  11. ASA [Suspect]
     Active Substance: ASPIRIN
     Indication: ATRIAL FIBRILLATION
     Dosage: CHRONIC
     Route: 048
  12. VITAMIN D [Concomitant]
     Active Substance: CHOLECALCIFEROL
  13. FISH OIL [Concomitant]
     Active Substance: FISH OIL
  14. ZAROXOLYN [Concomitant]
     Active Substance: METOLAZONE
  15. WARFARIN [Suspect]
     Active Substance: WARFARIN
     Indication: ATRIAL FIBRILLATION
     Dosage: 1MG Q THURS PO
     Route: 048
  16. LANOXIN [Concomitant]
     Active Substance: DIGOXIN

REACTIONS (4)
  - Lower gastrointestinal haemorrhage [None]
  - Polyp [None]
  - Colon cancer [None]
  - Anaemia [None]

NARRATIVE: CASE EVENT DATE: 20150205
